FAERS Safety Report 8591469-X (Version None)
Quarter: 2012Q3

REPORT INFORMATION
  Report Type: 
  Country: None (occurrence: None)
  Receive Date: 20120814
  Receipt Date: 20120803
  Transmission Date: 20120928
  Serious: Yes (Hospitalization, Other)
  Sender: FDA-Public Use
  Company Number: JP-US-EMD SERONO, INC.-7115100

PATIENT
  Sex: Female
  Weight: 17 kg

DRUGS (1)
  1. SAIZEN [Suspect]
     Indication: GROWTH HORMONE DEFICIENCY
     Route: 058
     Dates: start: 20111005, end: 20120210

REACTIONS (1)
  - SYSTEMIC LUPUS ERYTHEMATOSUS [None]
